FAERS Safety Report 10163595 (Version 5)
Quarter: 2015Q1

REPORT INFORMATION
  Report Type: Spontaneous
  Country: BR (occurrence: BR)
  Receive Date: 20140509
  Receipt Date: 20150219
  Transmission Date: 20150720
  Serious: Yes (Other)
  Sender: FDA-Public Use
  Company Number: BR-ABBVIE-14P-020-1235787-00

PATIENT
  Age: 65 Year
  Sex: Female
  Weight: 51 kg

DRUGS (5)
  1. SYNTHROID [Suspect]
     Active Substance: LEVOTHYROXINE SODIUM
     Indication: HYPOTHYROIDISM
     Route: 048
  2. ALL OTHER THERAPEUTIC PRODUCTS [Concomitant]
     Active Substance: UNSPECIFIED INGREDIENT
     Indication: PRODUCT USED FOR UNKNOWN INDICATION
  3. SYNTHROID [Suspect]
     Active Substance: LEVOTHYROXINE SODIUM
     Route: 048
     Dates: start: 201404
  4. SYNTHROID [Suspect]
     Active Substance: LEVOTHYROXINE SODIUM
     Indication: THYROID DISORDER
     Route: 048
     Dates: start: 1999
  5. SYNTHROID [Suspect]
     Active Substance: LEVOTHYROXINE SODIUM
     Dosage: DAILY DOSE: 88 MCG: (2 HOURS AFTER BREAKFAST)
     Route: 048
     Dates: start: 201404

REACTIONS (19)
  - Fatigue [Unknown]
  - Asthenia [Unknown]
  - Product counterfeit [Unknown]
  - Myalgia [Not Recovered/Not Resolved]
  - Anxiety [Not Recovered/Not Resolved]
  - Daydreaming [Unknown]
  - Ear discomfort [Unknown]
  - Inappropriate schedule of drug administration [Recovered/Resolved]
  - Bradyphrenia [Recovered/Resolved]
  - Amnesia [Recovered/Resolved]
  - Nervousness [Unknown]
  - Neck pain [Not Recovered/Not Resolved]
  - Blood thyroid stimulating hormone abnormal [Unknown]
  - Hypophagia [Unknown]
  - Somnolence [Recovering/Resolving]
  - Hyperhidrosis [Unknown]
  - Hypertension [Recovered/Resolved]
  - Product physical issue [Unknown]
  - Product physical issue [Recovered/Resolved]

NARRATIVE: CASE EVENT DATE: 201404
